FAERS Safety Report 7722881-6 (Version None)
Quarter: 2011Q3

REPORT INFORMATION
  Report Type: 
  Country: None (occurrence: None)
  Receive Date: 20110901
  Receipt Date: 20110824
  Transmission Date: 20111222
  Serious: No
  Sender: FDA-Public Use
  Company Number: US-BIOGENIDEC-2011BI032837

PATIENT
  Age: 46 Year
  Sex: Female

DRUGS (2)
  1. TYSABRI [Suspect]
     Indication: MULTIPLE SCLEROSIS
     Route: 042
     Dates: start: 20110401
  2. TYSABRI [Suspect]
     Route: 042
     Dates: start: 20081003, end: 20100512

REACTIONS (3)
  - DIARRHOEA [None]
  - NAUSEA [None]
  - RASH [None]
